FAERS Safety Report 5518511-4 (Version None)
Quarter: 2007Q4

REPORT INFORMATION
  Report Type: 
  Country: None (occurrence: None)
  Receive Date: 20071115
  Receipt Date: 20071112
  Transmission Date: 20080405
  Serious: Yes (Life-Threatening)
  Sender: FDA-Public Use
  Company Number: GB-BRISTOL-MYERS SQUIBB COMPANY-13978481

PATIENT
  Age: 54 Year
  Sex: Female
  Weight: 76 kg

DRUGS (4)
  1. PACLITAXEL [Suspect]
     Indication: BREAST CANCER
     Dates: start: 20070911
  2. GEMZAR [Suspect]
     Indication: BREAST CANCER
     Dates: start: 20070911
  3. ONDANSETRON [Concomitant]
     Indication: NAUSEA
     Route: 042
     Dates: start: 20071004, end: 20071004
  4. DEXAMETHASONE [Concomitant]
     Indication: NAUSEA
     Route: 042
     Dates: start: 20071004, end: 20071004

REACTIONS (3)
  - LIP SWELLING [None]
  - PRURITUS GENERALISED [None]
  - RASH [None]
